FAERS Safety Report 15335217 (Version 4)
Quarter: 2019Q1

REPORT INFORMATION
  Report Type: Spontaneous
  Country: US (occurrence: US)
  Receive Date: 20180830
  Receipt Date: 20190130
  Transmission Date: 20190417
  Serious: Yes (Hospitalization)
  Sender: FDA-Public Use
  Company Number: US-VIFOR (INTERNATIONAL) INC.-VIT-2018-08405

PATIENT
  Age: 74 Year
  Sex: Male
  Weight: 59.02 kg

DRUGS (25)
  1. NOVOLOG [Concomitant]
     Active Substance: INSULIN ASPART
  2. COENZYME Q10 [Concomitant]
     Active Substance: UBIDECARENONE
  3. GLIPIZIDE. [Concomitant]
     Active Substance: GLIPIZIDE
  4. INTEGRA PLUS [Concomitant]
     Active Substance: ASCORBIC ACID\BIOTIN\CALCIUM PANTOTHENATE\FERROUS ASPARTO GLYCINATE\FERROUS FUMARATE\FOLIC ACID\NIACIN\PYRIDOXINE HYDROCHLORIDE\RIBOFLAVIN\THIAMINE MONONITRATE
  5. PRAVASTATIN SODIUM. [Concomitant]
     Active Substance: PRAVASTATIN SODIUM
  6. XTANDI [Concomitant]
     Active Substance: ENZALUTAMIDE
  7. IRON [Concomitant]
     Active Substance: IRON
  8. FOSINOPRIL SODIUM. [Concomitant]
     Active Substance: FOSINOPRIL SODIUM
  9. CALCIUM [Concomitant]
     Active Substance: CALCIUM
  10. BICALUTAMIDE. [Concomitant]
     Active Substance: BICALUTAMIDE
  11. LANTUS SOLOSTAR [Concomitant]
     Active Substance: INSULIN GLARGINE
  12. CIPROFLOXACIN HCL [Concomitant]
     Active Substance: CIPROFLOXACIN HYDROCHLORIDE
  13. RAPAFLO [Concomitant]
     Active Substance: SILODOSIN
  14. VELTASSA [Suspect]
     Active Substance: PATIROMER
     Indication: HYPERKALAEMIA
     Route: 048
     Dates: start: 20161229
  15. METFORMIN HCL [Concomitant]
     Active Substance: METFORMIN HYDROCHLORIDE
  16. VERAPAMIL HCL [Concomitant]
     Active Substance: VERAPAMIL HYDROCHLORIDE
  17. DIOVAN [Concomitant]
     Active Substance: VALSARTAN
  18. EDARBI [Concomitant]
     Active Substance: AZILSARTAN KAMEDOXOMIL
  19. BENAZEPRIL HCL [Concomitant]
     Active Substance: BENAZEPRIL HYDROCHLORIDE
  20. LISINOPRIL. [Concomitant]
     Active Substance: LISINOPRIL
  21. TRAVATAN Z [Concomitant]
     Active Substance: TRAVOPROST
  22. FIRMAGON [Concomitant]
     Active Substance: DEGARELIX ACETATE
  23. ZETIA [Concomitant]
     Active Substance: EZETIMIBE
  24. ACTOS [Concomitant]
     Active Substance: PIOGLITAZONE HYDROCHLORIDE
  25. MULTIVITAMIN [Concomitant]
     Active Substance: VITAMINS

REACTIONS (4)
  - Product dose omission [Unknown]
  - Condition aggravated [Recovering/Resolving]
  - Neoplasm malignant [Recovering/Resolving]
  - Oliguria [Recovering/Resolving]

NARRATIVE: CASE EVENT DATE: 20180720
